FAERS Safety Report 5645848-0 (Version None)
Quarter: 2008Q1

REPORT INFORMATION
  Report Type: 
  Country: None (occurrence: None)
  Receive Date: 20080229
  Receipt Date: 20080218
  Transmission Date: 20080703
  Serious: Yes (Other)
  Sender: FDA-Public Use
  Company Number: US-PFIZER INC-2008005750

PATIENT
  Sex: Female
  Weight: 81.6 kg

DRUGS (4)
  1. CHANTIX [Suspect]
     Indication: SMOKING CESSATION THERAPY
     Dosage: FREQ:EVERY DAY
     Dates: start: 20070101, end: 20070101
  2. SERTRALINE [Suspect]
     Indication: DEPRESSION
  3. MIRTAZAPINE [Suspect]
     Indication: INSOMNIA
  4. KLONOPIN [Concomitant]

REACTIONS (11)
  - ABNORMAL DREAMS [None]
  - ANHEDONIA [None]
  - CONDITION AGGRAVATED [None]
  - DEPRESSION [None]
  - DRUG INEFFECTIVE [None]
  - HEADACHE [None]
  - HYPERSOMNIA [None]
  - INITIAL INSOMNIA [None]
  - INTENTIONAL DRUG MISUSE [None]
  - SMOKER [None]
  - WEIGHT INCREASED [None]
